FAERS Safety Report 10598725 (Version 1)
Quarter: 2014Q4

REPORT INFORMATION
  Report Type: Spontaneous
  Country: US (occurrence: US)
  Receive Date: 20141121
  Receipt Date: 20141121
  Transmission Date: 20150529
  Serious: Yes (Other)
  Sender: FDA-Public Use
  Company Number: US-PFIZER INC-2014317749

PATIENT
  Age: 53 Year
  Sex: Female
  Weight: 66 kg

DRUGS (6)
  1. PROVERA [Suspect]
     Active Substance: MEDROXYPROGESTERONE ACETATE
     Dosage: 5 MG, UNK
  2. ESTROGEN [Suspect]
     Active Substance: ESTRONE\SUS SCROFA OVARY
     Indication: MENOPAUSAL SYMPTOMS
     Dosage: 0.6 ML, EVERY 10 DAYS
     Dates: start: 201405, end: 201408
  3. CENTRUM FOR WOMEN [Concomitant]
     Dosage: UNK
  4. PROVERA [Suspect]
     Active Substance: MEDROXYPROGESTERONE ACETATE
     Indication: MENOPAUSAL SYMPTOMS
     Dosage: 2.5 MG, UNK
     Dates: start: 201405, end: 201408
  5. ESTROGEN [Suspect]
     Active Substance: ESTRONE\SUS SCROFA OVARY
     Dosage: 0.5 ML, UNK
  6. ESTROGEN [Suspect]
     Active Substance: ESTRONE\SUS SCROFA OVARY
     Dosage: 0.4 ML, UNK

REACTIONS (5)
  - Vaginal haemorrhage [Recovered/Resolved]
  - Breast tenderness [Recovered/Resolved]
  - Weight increased [Unknown]
  - Asthenia [Unknown]
  - Breast enlargement [Unknown]

NARRATIVE: CASE EVENT DATE: 201405
